FAERS Safety Report 5586923-9 (Version None)
Quarter: 2008Q1

REPORT INFORMATION
  Report Type: 
  Country: None (occurrence: None)
  Receive Date: 20080110
  Receipt Date: 20071230
  Transmission Date: 20080703
  Serious: Yes (Other)
  Sender: FDA-Public Use
  Company Number: BR-ROCHE-539221

PATIENT
  Age: 76 Year
  Sex: Female
  Weight: 80 kg

DRUGS (3)
  1. RIVOTRIL [Suspect]
     Indication: DRUG THERAPY
     Route: 048
     Dates: start: 20071229, end: 20071229
  2. CAPTOPRIL [Concomitant]
     Route: 048
     Dates: end: 20071229
  3. CAPTOPRIL [Concomitant]
     Dosage: INDICATION REPORTED: ARTERIAL PRESSURE DISORDER NOS.
     Route: 048
     Dates: start: 20071230

REACTIONS (7)
  - AMNESIA [None]
  - BALANCE DISORDER [None]
  - BLOOD PRESSURE INCREASED [None]
  - COORDINATION ABNORMAL [None]
  - FORMICATION [None]
  - HEADACHE [None]
  - SYNCOPE [None]
